FAERS Safety Report 9142956 (Version 2)
Quarter: 2013Q1

REPORT INFORMATION
  Report Type: Spontaneous
  Country: US (occurrence: US)
  Receive Date: 20130306
  Receipt Date: 20130325
  Transmission Date: 20140127
  Serious: No
  Sender: FDA-Public Use
  Company Number: US-PFIZER INC-2013077550

PATIENT
  Sex: Female
  Weight: 140 kg

DRUGS (3)
  1. GABAPENTIN [Suspect]
     Indication: NEUROPATHY PERIPHERAL
     Dosage: UNK
     Dates: end: 2011
  2. GABAPENTIN [Suspect]
     Indication: INTERVERTEBRAL DISC DISORDER
  3. GABAPENTIN [Suspect]
     Indication: BACK PAIN

REACTIONS (4)
  - Oedema [Unknown]
  - Local swelling [Unknown]
  - Fibromyalgia [Unknown]
  - Drug ineffective [Unknown]
